FAERS Safety Report 5944741-3 (Version None)
Quarter: 2008Q4

REPORT INFORMATION
  Report Type: 
  Country: None (occurrence: None)
  Receive Date: 20081107
  Receipt Date: 20081028
  Transmission Date: 20090506
  Serious: Yes (Hospitalization)
  Sender: FDA-Public Use
  Company Number: JP-BRISTOL-MYERS SQUIBB COMPANY-14395768

PATIENT
  Age: 40 Year
  Sex: Female

DRUGS (16)
  1. ERBITUX [Suspect]
     Indication: COLON CANCER
     Dosage: 22-OCT-2008 PATIENT RECEIVED CETUXIMAB 250 MG/M2 INTRAVENOUSLY.
     Route: 041
     Dates: start: 20081010
  2. CHLORPHENIRAMINE MALEATE [Concomitant]
  3. MYSLEE [Concomitant]
     Dosage: FORMULATION: TABLET
     Route: 048
     Dates: start: 20081021, end: 20081027
  4. ACTOS [Concomitant]
     Dosage: FORMULATION: TABLET
     Route: 048
     Dates: start: 20081016, end: 20081026
  5. ADONA [Concomitant]
     Dosage: FORMULATION: TABLET
     Route: 048
     Dates: start: 20081020, end: 20081027
  6. AMOXAPINE [Concomitant]
     Dosage: FORMULATION - CAPSULE
     Route: 048
     Dates: start: 20081014, end: 20081027
  7. ALDACTONE [Concomitant]
     Dosage: FORMULATION: TABLET
     Route: 048
     Dates: start: 20081014, end: 20081027
  8. FAMOTIDINE [Concomitant]
     Dosage: FORMULATION: TABLET
     Route: 048
     Dates: start: 20081014, end: 20081027
  9. GLUFAST [Concomitant]
     Dosage: FORMULATION: TABLET
     Route: 048
     Dates: start: 20081014, end: 20081026
  10. TRANSAMIN [Concomitant]
     Dosage: FORMULATION - CAPSULE
     Route: 048
     Dates: start: 20081020, end: 20081027
  11. NAIXAN [Concomitant]
     Dosage: FORMULATION: TABLET
     Route: 048
     Dates: start: 20081014, end: 20081030
  12. NOVAMIN [Concomitant]
     Dosage: FORMULATION: TABLET
     Route: 048
     Dates: start: 20081020, end: 20081027
  13. HYPEN [Concomitant]
     Dosage: FORMULATION: TABLET
     Route: 048
     Dates: start: 20081014, end: 20081017
  14. POLARAMINE [Concomitant]
     Dosage: FORMULATION: TABLET
     Route: 048
     Dates: start: 20081020, end: 20081027
  15. LASIX [Concomitant]
     Route: 048
     Dates: start: 20081014, end: 20081027
  16. MAGNESIUM OXIDE [Concomitant]
     Route: 048

REACTIONS (3)
  - ANAEMIA [None]
  - HYPERBILIRUBINAEMIA [None]
  - PLATELET COUNT DECREASED [None]
